FAERS Safety Report 20411998 (Version 2)
Quarter: 2022Q1

REPORT INFORMATION
  Report Type: Spontaneous
  Country: US (occurrence: US)
  Receive Date: 20220201
  Receipt Date: 20220321
  Transmission Date: 20220423
  Serious: No
  Sender: FDA-Public Use
  Company Number: US-BIOGEN-2022BI01089068

PATIENT
  Age: 66 Year
  Sex: Female

DRUGS (1)
  1. TYSABRI [Suspect]
     Active Substance: NATALIZUMAB
     Indication: Multiple sclerosis
     Route: 042
     Dates: start: 202004

REACTIONS (5)
  - Product dose omission issue [Unknown]
  - Balance disorder [Not Recovered/Not Resolved]
  - Mental impairment [Unknown]
  - Frustration tolerance decreased [Unknown]
  - Malaise [Unknown]

NARRATIVE: CASE EVENT DATE: 20220101
